FAERS Safety Report 9121142 (Version 1)
Quarter: 2013Q1

REPORT INFORMATION
  Report Type: Spontaneous
  Country: AU (occurrence: AU)
  Receive Date: 20130226
  Receipt Date: 20130226
  Transmission Date: 20140127
  Serious: Yes (Other)
  Sender: FDA-Public Use
  Company Number: AU-ROCHE-1195310

PATIENT
  Sex: 0

DRUGS (10)
  1. HERCEPTIN [Suspect]
     Indication: METASTATIC NEOPLASM
     Route: 065
     Dates: start: 200807, end: 201202
  2. HERCEPTIN [Suspect]
     Route: 065
     Dates: start: 201210, end: 201301
  3. XELODA [Suspect]
     Indication: METASTATIC NEOPLASM
     Route: 065
     Dates: start: 201202, end: 201209
  4. FLUOROURACIL [Concomitant]
  5. EPIRUBICIN [Concomitant]
  6. CYCLOPHOSPHAMIDE [Concomitant]
  7. DOCETAXEL [Concomitant]
     Route: 065
     Dates: start: 200807
  8. NAB-PACLITAXEL [Concomitant]
     Route: 065
     Dates: start: 201107, end: 201202
  9. TYKERB [Concomitant]
     Route: 065
     Dates: start: 201202, end: 201209
  10. VINORELBINE [Concomitant]
     Route: 065
     Dates: start: 201210, end: 201301

REACTIONS (1)
  - Disease progression [Unknown]
